FAERS Safety Report 6220736-X (Version None)
Quarter: 2009Q2

REPORT INFORMATION
  Report Type: 
  Country: None (occurrence: None)
  Receive Date: 20090610
  Receipt Date: 20090602
  Transmission Date: 20091009
  Serious: Yes (Congenital Anomaly)
  Sender: FDA-Public Use
  Company Number: PHHY2009FR01873

PATIENT

DRUGS (2)
  1. TEGRETOL-XR [Suspect]
     Dosage: MATERNAL DOSE: 400 MG BID
     Route: 064
  2. ALEPSAL [Suspect]
     Route: 064

REACTIONS (3)
  - CEREBELLAR HYPOPLASIA [None]
  - CEREBRAL VENTRICLE DILATATION [None]
  - DRUG EXPOSURE DURING PREGNANCY [None]
